FAERS Safety Report 9483849 (Version 4)
Quarter: 2013Q4

REPORT INFORMATION
  Report Type: Spontaneous
  Country: AU (occurrence: AU)
  Receive Date: 20130828
  Receipt Date: 20131014
  Transmission Date: 20140711
  Serious: Yes (Death, Life-Threatening, Other)
  Sender: FDA-Public Use
  Company Number: PHHY2013AU082757

PATIENT
  Age: 72 Year
  Sex: Female

DRUGS (3)
  1. AFINITOR [Suspect]
     Indication: BREAST CANCER METASTATIC
     Dosage: 10 MG, DAILY
     Dates: start: 20130620, end: 20130716
  2. AFINITOR [Suspect]
     Dosage: 5 MG
     Route: 048
     Dates: start: 20130802, end: 20130806
  3. EXEMESTANE [Suspect]
     Dates: start: 201306

REACTIONS (6)
  - Malignant neoplasm progression [Fatal]
  - Metastases to liver [Fatal]
  - Breast cancer metastatic [Fatal]
  - Pancytopenia [Recovered/Resolved]
  - General physical health deterioration [Unknown]
  - Platelet count decreased [Unknown]
